FAERS Safety Report 8153913-1 (Version None)
Quarter: 2012Q1

REPORT INFORMATION
  Report Type: 
  Country: None (occurrence: None)
  Receive Date: 20120221
  Receipt Date: 20120206
  Transmission Date: 20120608
  Serious: Yes (Other)
  Sender: FDA-Public Use
  Company Number: US-ROCHE-1039262

PATIENT
  Sex: Male

DRUGS (6)
  1. SIMVASTATIN [Concomitant]
     Dosage: DOSE 40 OT
  2. RANIBIZUMAB [Suspect]
     Indication: AGE-RELATED MACULAR DEGENERATION
     Route: 050
  3. ACTRAPID PENFILL [Concomitant]
  4. METFORMIN HYDROCHLORIDE [Concomitant]
     Dosage: DOSE 850 OT
  5. LISIHEXAL [Concomitant]
     Dosage: DOSE 2.5 OT
  6. OBSIDAN [Concomitant]
     Dosage: DOSE 25 OT

REACTIONS (1)
  - AGE-RELATED MACULAR DEGENERATION [None]
